FAERS Safety Report 11184849 (Version 1)
Quarter: 2015Q2

REPORT INFORMATION
  Report Type: Spontaneous
  Country: US (occurrence: US)
  Receive Date: 20150612
  Receipt Date: 20150612
  Transmission Date: 20150821
  Serious: Yes (Other)
  Sender: FDA-Public Use
  Company Number: PHHY2015US068689

PATIENT
  Age: 18 Year
  Sex: Female

DRUGS (4)
  1. CANNABIS [Suspect]
     Active Substance: CANNABIS SATIVA SUBSP. INDICA TOP
     Indication: PRODUCT USED FOR UNKNOWN INDICATION
     Route: 065
  2. HUMAN PAPILLOMA VIRUS VACCINE [Suspect]
     Active Substance: HUMAN PAPILLOMAVIRUS VACCINE
     Indication: IMMUNISATION
     Route: 065
  3. FERROUS SULFATE [Suspect]
     Active Substance: FERROUS SULFATE\FERROUS SULFATE, DRIED
     Indication: PRODUCT USED FOR UNKNOWN INDICATION
     Route: 065
  4. INFLUENZA VIRUS VACCINE - UNKNOWN INN [Suspect]
     Active Substance: INFLUENZA VIRUS VACCINE
     Indication: IMMUNISATION
     Dosage: 1 DF
     Route: 065

REACTIONS (4)
  - Vanishing twin syndrome [None]
  - Stillbirth [Unknown]
  - Premature delivery [Unknown]
  - Maternal exposure during pregnancy [Unknown]
